FAERS Safety Report 10188325 (Version 1)
Quarter: 2014Q2

REPORT INFORMATION
  Report Type: Spontaneous
  Country: AR (occurrence: AR)
  Receive Date: 20140522
  Receipt Date: 20140522
  Transmission Date: 20141212
  Serious: Yes (Other)
  Sender: FDA-Public Use
  Company Number: AR-AMGEN INC.-ARGSP2014037875

PATIENT
  Age: 75 Year
  Sex: Female

DRUGS (1)
  1. ENBREL [Suspect]
     Indication: RHEUMATOID ARTHRITIS
     Dosage: 50 MG, EVERY 2 WEEKS
     Route: 065
     Dates: start: 20111108, end: 2014

REACTIONS (3)
  - Musculoskeletal disorder [Not Recovered/Not Resolved]
  - Herpes zoster [Not Recovered/Not Resolved]
  - Gastroenteritis [Not Recovered/Not Resolved]
